FAERS Safety Report 8792760 (Version 1)
Quarter: 2012Q4

REPORT INFORMATION
  Report Type: 
  Country: JP (occurrence: JP)
  Receive Date: 20120918
  Receipt Date: 20120918
  Transmission Date: 20130627
  Serious: Yes (Hospitalization)
  Sender: FDA-Public Use
  Company Number: JP-GLAXOSMITHKLINE-B0823404A

PATIENT
  Age: 55 Year
  Sex: Female

DRUGS (5)
  1. VALTREX [Suspect]
     Indication: ORAL HERPES
     Dosage: 500MG Twice per day
     Route: 048
     Dates: start: 20120530, end: 20120603
  2. EPADEL S [Concomitant]
     Indication: THROMBOSIS
     Dosage: 600MG Twice per day
     Route: 048
  3. AMLODIN [Concomitant]
     Indication: HYPERTENSION
     Dosage: 5MG Per day
     Route: 048
  4. FLUITRAN [Concomitant]
     Indication: HYPERTENSION
     Dosage: 1MG Per day
     Route: 048
  5. PARIET [Concomitant]
     Indication: GASTRITIS
     Dosage: 10MG Per day
     Route: 048

REACTIONS (10)
  - Hepatic function abnormal [Recovered/Resolved]
  - Toxic skin eruption [Recovered/Resolved]
  - Erythema [Unknown]
  - Pyrexia [Unknown]
  - Jaundice [Unknown]
  - Decreased appetite [Unknown]
  - Gallbladder disorder [Unknown]
  - Gallbladder disorder [Unknown]
  - Hepatic cyst [Unknown]
  - Rash [Unknown]
